FAERS Safety Report 13196273 (Version 2)
Quarter: 2017Q3

REPORT INFORMATION
  Report Type: Spontaneous
  Country: US (occurrence: US)
  Receive Date: 20170208
  Receipt Date: 20170731
  Transmission Date: 20171127
  Serious: No
  Sender: FDA-Public Use
  Company Number: US-PFIZER INC-2017049269

PATIENT
  Sex: Female
  Weight: 63 kg

DRUGS (2)
  1. HYDROCORTISONE. [Suspect]
     Active Substance: HYDROCORTISONE
     Indication: ADDISON^S DISEASE
     Dosage: 10 MG, 3X/DAY
     Dates: start: 1988
  2. FLORINEF ACETATE [Concomitant]
     Active Substance: FLUDROCORTISONE ACETATE
     Indication: ADDISON^S DISEASE
     Dosage: 0.1 MG, 1X/DAY
     Dates: start: 1988

REACTIONS (5)
  - Fatigue [Recovered/Resolved]
  - Nausea [Recovered/Resolved]
  - Drug ineffective [Recovered/Resolved]
  - Muscle spasms [Recovered/Resolved]
  - Malaise [Recovered/Resolved]
